FAERS Safety Report 8925934 (Version 3)
Quarter: 2013Q1

REPORT INFORMATION
  Report Type: Spontaneous
  Country: US (occurrence: US)
  Receive Date: 20121126
  Receipt Date: 20130128
  Transmission Date: 20140127
  Serious: Yes (Other)
  Sender: FDA-Public Use
  Company Number: PHEH2012US022870

PATIENT
  Sex: Female
  Weight: 112 kg

DRUGS (3)
  1. ZOMETA [Suspect]
     Indication: METASTASES TO BONE
     Dosage: 4 MG, EVERY 4 WEEKS
     Route: 042
     Dates: start: 201002, end: 201012
  2. CYTOXAN [Concomitant]
     Indication: BREAST CANCER METASTATIC
     Dosage: 600 MG/M2,23 WEEK
     Route: 042
  3. TAXOTERE [Concomitant]
     Indication: BREAST CANCER METASTATIC
     Dosage: 60 MG/M2, 23 WEEK
     Route: 042

REACTIONS (4)
  - Osteonecrosis of jaw [Recovered/Resolved with Sequelae]
  - Osteomyelitis [Unknown]
  - Pain in jaw [Unknown]
  - Exposed bone in jaw [Unknown]
